FAERS Safety Report 26103541 (Version 1)
Quarter: 2025Q4

REPORT INFORMATION
  Report Type: Spontaneous
  Country: US (occurrence: US)
  Receive Date: 20251129
  Receipt Date: 20251129
  Transmission Date: 20260118
  Serious: No
  Sender: AMGEN
  Company Number: US-AMGEN-USASP2025235928

PATIENT
  Age: 53 Year
  Sex: Male

DRUGS (9)
  1. OTEZLA [Suspect]
     Active Substance: APREMILAST
     Indication: Psoriasis
     Dosage: 30 MILLIGRAM, BID
     Route: 048
     Dates: start: 20250617, end: 20251125
  2. VITAMIN D [Concomitant]
     Active Substance: VITAMIN D NOS
     Dosage: SOFTGELS 1000 IU
  3. IBUPROFEN [Concomitant]
     Active Substance: IBUPROFEN
     Dosage: 200 MILLIGRAM
  4. CLOBETASOL [Concomitant]
     Active Substance: CLOBETASOL
     Dosage: 15 GRAM
  5. ZORYVE [Concomitant]
     Active Substance: ROFLUMILAST
     Dosage: 60 GRAM
  6. HYDROCORTISONE [Concomitant]
     Active Substance: HYDROCORTISONE
     Dosage: 30 GRAM
  7. FISH OIL [Concomitant]
     Active Substance: FISH OIL
     Dosage: 1000 MILLIGRAM
  8. ROSUVASTATIN [Concomitant]
     Active Substance: ROSUVASTATIN
     Dosage: 10 MILLIGRAM
  9. ZINC [Concomitant]
     Active Substance: ZINC
     Dosage: 50 MILLIGRAM

REACTIONS (1)
  - Depression [Unknown]

NARRATIVE: CASE EVENT DATE: 20251114
